FAERS Safety Report 7785104-8 (Version None)
Quarter: 2011Q3

REPORT INFORMATION
  Report Type: 
  Country: None (occurrence: None)
  Receive Date: 20110929
  Receipt Date: 20110922
  Transmission Date: 20111222
  Serious: No
  Sender: FDA-Public Use
  Company Number: US-BIOGENIDEC-2011BI028089

PATIENT
  Sex: Male

DRUGS (3)
  1. TYSABRI [Suspect]
     Route: 042
     Dates: start: 20110809
  2. TYSABRI [Suspect]
     Indication: MULTIPLE SCLEROSIS
     Route: 042
     Dates: start: 20070403, end: 20100211
  3. TYSABRI [Suspect]
     Route: 042
     Dates: start: 20050111, end: 20050211

REACTIONS (3)
  - DEMENTIA [None]
  - AMNESIA [None]
  - DRUG DOSE OMISSION [None]
